FAERS Safety Report 5777962-3 (Version None)
Quarter: 2008Q2

REPORT INFORMATION
  Report Type: 
  Country: None (occurrence: None)
  Receive Date: 20080618
  Receipt Date: 20080618
  Transmission Date: 20081010
  Serious: Yes (Other)
  Sender: FDA-Public Use
  Company Number: None

PATIENT
  Sex: Female

DRUGS (2)
  1. PRIVIGEN [Suspect]
     Indication: IDIOPATHIC THROMBOCYTOPENIC PURPURA
     Dosage: 3 BOTTLES OF 20GMS ONCE IV DRIP
     Route: 041
     Dates: start: 20080612, end: 20080612
  2. PRIVIGEN [Suspect]
     Dosage: 2 BOTTLES OF 10GMS ONCE IV DRIP
     Route: 041

REACTIONS (4)
  - HEADACHE [None]
  - MENINGITIS ASEPTIC [None]
  - NAUSEA [None]
  - VOMITING [None]
